FAERS Safety Report 6711380-6 (Version None)
Quarter: 2010Q2

REPORT INFORMATION
  Report Type: 
  Country: None (occurrence: None)
  Receive Date: 20100505
  Receipt Date: 20100429
  Transmission Date: 20101027
  Serious: Yes (Other)
  Sender: FDA-Public Use
  Company Number: US-BAYER-201014854BCC

PATIENT
  Age: 90 Year
  Sex: Male

DRUGS (11)
  1. ASPIRIN [Suspect]
     Indication: DRUG USE FOR UNKNOWN INDICATION
     Route: 048
     Dates: start: 20070101, end: 20090101
  2. PLAVIX [Suspect]
     Indication: PERIPHERAL ARTERIAL OCCLUSIVE DISEASE
     Route: 048
     Dates: start: 20070101
  3. LIPITOR [Concomitant]
     Route: 065
  4. DIOVAN [Concomitant]
     Route: 065
  5. DITROPAN XL [Concomitant]
     Route: 065
  6. LUMIGAN [Concomitant]
     Route: 065
  7. DOCUSATE SODIUM [Concomitant]
     Route: 065
  8. IMIPRAMINE [Concomitant]
     Route: 065
  9. MUCINEX [Concomitant]
     Route: 065
  10. NORVASC [Concomitant]
     Route: 065
  11. KEFLEX [Concomitant]
     Route: 065

REACTIONS (6)
  - CONSTIPATION [None]
  - FATIGUE [None]
  - HYPOAESTHESIA [None]
  - MELAENA [None]
  - PALLOR [None]
  - RASH MACULAR [None]
